FAERS Safety Report 4367628-9 (Version None)
Quarter: 2004Q2

REPORT INFORMATION
  Report Type: 
  Country: None (occurrence: None)
  Receive Date: 20040601
  Receipt Date: 20040407
  Transmission Date: 20050107
  Serious: Yes (Life-Threatening, Hospitalization)
  Sender: FDA-Public Use
  Company Number: BE-MERCK-0404BEL00015

PATIENT
  Age: 75 Year
  Sex: Female
  Weight: 75 kg

DRUGS (3)
  1. [THERAPY UNSPECIFIED] [Concomitant]
     Route: 048
  2. HYZAAR [Suspect]
     Indication: HYPERTENSION
     Route: 048
  3. PROPAFENONE HYDROCHLORIDE [Concomitant]
     Route: 048

REACTIONS (4)
  - DIARRHOEA [None]
  - HALLUCINATION [None]
  - HYPONATRAEMIA [None]
  - VOMITING [None]
